FAERS Safety Report 16367087 (Version 1)
Quarter: 2019Q2

REPORT INFORMATION
  Report Type: Report from Study
  Country: None (occurrence: US)
  Receive Date: 20190529
  Receipt Date: 20190529
  Transmission Date: 20190711
  Serious: Yes (Other)
  Sender: FDA-Public Use
  Company Number: US-ABBVIE-19S-163-2794531-00

PATIENT
  Age: 62 Year
  Sex: Male

DRUGS (1)
  1. LUPRON [Suspect]
     Active Substance: LEUPROLIDE ACETATE
     Indication: PRODUCT USED FOR UNKNOWN INDICATION
     Route: 050

REACTIONS (6)
  - Tenoplasty [Unknown]
  - Prostate cancer [Unknown]
  - Appendicectomy [Unknown]
  - Knee operation [Unknown]
  - Scrotal mass [Unknown]
  - Colonoscopy [Unknown]

NARRATIVE: CASE EVENT DATE: 2011
